FAERS Safety Report 18773710 (Version 1)
Quarter: 2021Q1

REPORT INFORMATION
  Report Type: Spontaneous
  Country: US (occurrence: US)
  Receive Date: 20210121
  Receipt Date: 20210121
  Transmission Date: 20210419
  Serious: Yes (Hospitalization)
  Sender: FDA-Public Use
  Company Number: None

PATIENT
  Age: 34 Year
  Sex: Female

DRUGS (12)
  1. TADALAFIL 20MG TAB [Suspect]
     Active Substance: TADALAFIL
     Indication: PULMONARY ARTERIAL HYPERTENSION
     Route: 048
     Dates: start: 20200402
  2. FOLBIC [Suspect]
     Active Substance: CYANOCOBALAMIN\FOLIC ACID\PYRIDOXINE
  3. LEVOTHYROXIN [Suspect]
     Active Substance: LEVOTHYROXINE
  4. METHYLPRED [Suspect]
     Active Substance: METHYLPREDNISOLONE
  5. MYCOPHENOLAT [Suspect]
     Active Substance: MYCOPHENOLATE MOFETIL
  6. SMZ/TMP [Suspect]
     Active Substance: SULFAMETHOXAZOLE\TRIMETHOPRIM
  7. HYDROXYCHLOR [Suspect]
     Active Substance: HYDROXYCHLOROQUINE
  8. AMBRISENTAN 5MG TAB [Suspect]
     Active Substance: AMBRISENTAN
     Indication: PULMONARY ARTERIAL HYPERTENSION
     Route: 048
     Dates: start: 20200402
  9. ELIQUIS [Suspect]
     Active Substance: APIXABAN
  10. FUROSEMIDE. [Suspect]
     Active Substance: FUROSEMIDE
  11. DEXAMETHASON [Suspect]
     Active Substance: DEXAMETHASONE
  12. OMEPRAZOLE. [Suspect]
     Active Substance: OMEPRAZOLE

REACTIONS (1)
  - COVID-19 [None]

NARRATIVE: CASE EVENT DATE: 20210120
